FAERS Safety Report 5382887-1 (Version None)
Quarter: 2007Q3

REPORT INFORMATION
  Report Type: 
  Country: None (occurrence: None)
  Receive Date: 20070710
  Receipt Date: 20070702
  Transmission Date: 20080115
  Serious: Yes (Hospitalization, Other)
  Sender: FDA-Public Use
  Company Number: PHRM2007FR01291

PATIENT
  Age: 35 Year
  Sex: Male
  Weight: 68 kg

DRUGS (5)
  1. HALDOL [Concomitant]
     Indication: DELUSION
     Dosage: 150 MG/4 WEEKS
     Dates: start: 20070409
  2. TERCIAN [Concomitant]
     Route: 048
  3. TRILEPTAL [Suspect]
     Indication: BIPOLAR DISORDER
     Dosage: 1500 MG/DAY
     Route: 048
     Dates: start: 20070316, end: 20070410
  4. GAVISCON /GFR/ [Concomitant]
     Route: 048
  5. LEPTICUR [Concomitant]
     Route: 048

REACTIONS (3)
  - CONCUSSION [None]
  - EPILEPSY [None]
  - HYPONATRAEMIA [None]
